FAERS Safety Report 8878954 (Version 2)
Quarter: 2015Q1

REPORT INFORMATION
  Report Type: Report from Study
  Country: US (occurrence: US)
  Receive Date: 20121026
  Receipt Date: 20150126
  Transmission Date: 20150721
  Serious: Yes (Other)
  Sender: FDA-Public Use
  Company Number: US-ROCHE-1139086

PATIENT
  Sex: Male
  Weight: 28 kg

DRUGS (3)
  1. OXY-5 [Concomitant]
     Indication: ACNE
  2. PROTROPIN [Suspect]
     Active Substance: SOMATREM
     Route: 058
  3. PROTROPIN [Suspect]
     Active Substance: SOMATREM
     Indication: GROWTH HORMONE DEFICIENCY
     Route: 058
     Dates: start: 19910827

REACTIONS (3)
  - Drug dose omission [Unknown]
  - Acne [Unknown]
  - Leukaemia [Unknown]
